FAERS Safety Report 5495407-8 (Version None)
Quarter: 2007Q4

REPORT INFORMATION
  Report Type: 
  Country: None (occurrence: None)
  Receive Date: 20071024
  Receipt Date: 20070816
  Transmission Date: 20080405
  Serious: No
  Sender: FDA-Public Use
  Company Number: US-AMGEN-KDL239054

PATIENT
  Sex: Male

DRUGS (2)
  1. KEPIVANCE [Suspect]
     Indication: ACUTE MYELOID LEUKAEMIA
     Dates: start: 20070811, end: 20070813
  2. UNSPECIFIED ANTINEOPLASTIC AGENT [Concomitant]

REACTIONS (2)
  - PAIN IN EXTREMITY [None]
  - PAIN OF SKIN [None]
